FAERS Safety Report 13579245 (Version 1)
Quarter: 2017Q2

REPORT INFORMATION
  Report Type: Spontaneous
  Country: US (occurrence: US)
  Receive Date: 20170525
  Receipt Date: 20170525
  Transmission Date: 20170830
  Serious: No
  Sender: FDA-Public Use
  Company Number: US-ASTRAZENECA-2017SE52640

PATIENT
  Age: 74 Year
  Sex: Female
  Weight: 63.5 kg

DRUGS (2)
  1. PULMICORT FLEXHALER [Suspect]
     Active Substance: BUDESONIDE
     Indication: INFLUENZA
     Dosage: PULMICORT FLEXHALER
     Route: 055
     Dates: start: 201606
  2. PULMICORT FLEXHALER [Suspect]
     Active Substance: BUDESONIDE
     Indication: INFLUENZA
     Dosage: PULMICORT RESPULES.
     Route: 055
     Dates: start: 201606

REACTIONS (5)
  - Malaise [Unknown]
  - Product use in unapproved indication [Unknown]
  - Product use issue [Unknown]
  - Candida infection [Unknown]
  - Asthma [Unknown]

NARRATIVE: CASE EVENT DATE: 2016
